FAERS Safety Report 13707693 (Version 1)
Quarter: 2017Q2

REPORT INFORMATION
  Report Type: Spontaneous
  Country: US (occurrence: US)
  Receive Date: 20170630
  Receipt Date: 20170630
  Transmission Date: 20170830
  Serious: Yes (Other)
  Sender: FDA-Public Use
  Company Number: US-SA-2017SA116118

PATIENT
  Age: 78 Year
  Sex: Female

DRUGS (1)
  1. AMBIEN [Suspect]
     Active Substance: ZOLPIDEM TARTRATE
     Indication: INSOMNIA
     Route: 048
     Dates: start: 2016, end: 201705

REACTIONS (10)
  - Gastrointestinal disorder [Unknown]
  - Suicidal ideation [Recovered/Resolved]
  - Nausea [Recovered/Resolved]
  - Swelling face [Unknown]
  - Hypotension [Unknown]
  - Facial paralysis [Recovered/Resolved]
  - Paraesthesia [Recovering/Resolving]
  - Muscular weakness [Not Recovered/Not Resolved]
  - Pruritus [Recovering/Resolving]
  - Depression [Recovered/Resolved]

NARRATIVE: CASE EVENT DATE: 20170413
